FAERS Safety Report 22663627 (Version 6)
Quarter: 2024Q1

REPORT INFORMATION
  Report Type: Report from Study
  Country: US (occurrence: US)
  Receive Date: 20230703
  Receipt Date: 20240105
  Transmission Date: 20240410
  Serious: No
  Sender: FDA-Public Use
  Company Number: US-ACADIA PHARMACEUTICALS INC.-ACA-2023-TRF-002301

PATIENT
  Age: 9 Year
  Sex: Female

DRUGS (22)
  1. DAYBUE [Suspect]
     Active Substance: TROFINETIDE
     Indication: Rett syndrome
     Dosage: 30 MILLILITER, G-TUBE
  2. DAYBUE [Suspect]
     Active Substance: TROFINETIDE
     Dosage: 10 MILLILITER, BID
     Dates: start: 20230531
  3. DAYBUE [Suspect]
     Active Substance: TROFINETIDE
     Dosage: 5 MILLILITER, BID, G TUBE
     Dates: start: 20230604, end: 20230604
  4. DAYBUE [Suspect]
     Active Substance: TROFINETIDE
     Dosage: 40 MILLILITER, BID
  5. DAYBUE [Suspect]
     Active Substance: TROFINETIDE
     Dosage: 40 MILLILITER, BID
     Dates: end: 20230627
  6. DAYBUE [Suspect]
     Active Substance: TROFINETIDE
     Dosage: 1 MILLILITER, BID
  7. DAYBUE [Suspect]
     Active Substance: TROFINETIDE
     Dosage: 5 MILLILITER, BID
     Dates: start: 20231120
  8. DAYBUE [Suspect]
     Active Substance: TROFINETIDE
     Dosage: TWICE IN THE PM AND TWICE IN THE AM
  9. DAYBUE [Suspect]
     Active Substance: TROFINETIDE
     Dosage: 2.5 MILLILITER
     Route: 065
     Dates: start: 20231128
  10. OMEPRAZOLE [Suspect]
     Active Substance: OMEPRAZOLE
  11. ZONISAMIDE [Suspect]
     Active Substance: ZONISAMIDE
  12. DIAZEPAM [Suspect]
     Active Substance: DIAZEPAM
  13. BACLOFEN [Concomitant]
     Active Substance: BACLOFEN
  14. BETHANECHOL [Concomitant]
     Active Substance: BETHANECHOL
  15. DIAZEPAM [Concomitant]
     Active Substance: DIAZEPAM
  16. LEXAPRO [Concomitant]
     Active Substance: ESCITALOPRAM OXALATE
  17. GABAPENTIN [Concomitant]
     Active Substance: GABAPENTIN
  18. POLY VI SOL [VITAMINS NOS] [Concomitant]
  19. TRIHEXYPHENIDYL [Concomitant]
     Active Substance: TRIHEXYPHENIDYL
  20. ZONISAMIDE [Concomitant]
     Active Substance: ZONISAMIDE
  21. ZYRTEC [Concomitant]
     Active Substance: CETIRIZINE HYDROCHLORIDE
  22. GAS-X [Concomitant]
     Active Substance: DIMETHICONE

REACTIONS (13)
  - Drug interaction [Recovered/Resolved]
  - Adverse drug reaction [Unknown]
  - Irritable bowel syndrome [Unknown]
  - Illness [Unknown]
  - Nausea [Unknown]
  - Drug interaction [Not Recovered/Not Resolved]
  - Underdose [Not Recovered/Not Resolved]
  - Inappropriate schedule of product administration [Unknown]
  - Vomiting [Not Recovered/Not Resolved]
  - Vomiting [Not Recovered/Not Resolved]
  - Diarrhoea [Unknown]
  - Vomiting [Unknown]
  - Vomiting [Recovered/Resolved]

NARRATIVE: CASE EVENT DATE: 20230531
